FAERS Safety Report 19169309 (Version 1)
Quarter: 2021Q2

REPORT INFORMATION
  Report Type: Spontaneous
  Country: US (occurrence: US)
  Receive Date: 20210422
  Receipt Date: 20210422
  Transmission Date: 20210717
  Serious: No
  Sender: FDA-Public Use
  Company Number: US-PFIZER INC-2021224057

PATIENT
  Age: 48 Year
  Sex: Female

DRUGS (1)
  1. EUCRISA [Suspect]
     Active Substance: CRISABOROLE
     Dosage: APPLY A THIN LAYER TO THE DRY, SCALY AREAS AROUND THE LIPS BY TOPICAL ROUTE AS NEEDED
     Route: 061

REACTIONS (2)
  - Off label use [Unknown]
  - COVID-19 [Unknown]
